FAERS Safety Report 4305272-X (Version None)
Quarter: 2004Q1

REPORT INFORMATION
  Report Type: 
  Country: None (occurrence: None)
  Receive Date: 20040226
  Receipt Date: 20030122
  Transmission Date: 20041129
  Serious: Yes (Other)
  Sender: FDA-Public Use
  Company Number: US-BRISTOL-MYERS SQUIBB COMPANY-12164810

PATIENT
  Age: 47 Year
  Sex: Female
  Weight: 64 kg

DRUGS (6)
  1. TAXOL [Suspect]
     Indication: OVARIAN CANCER
     Dosage: DOSE = 175 MG/M^2
     Route: 042
     Dates: start: 20030116, end: 20030116
  2. PEPCID [Concomitant]
     Indication: PREMEDICATION
     Route: 042
  3. BENADRYL [Concomitant]
     Indication: PREMEDICATION
     Route: 042
  4. ANZEMET [Concomitant]
     Indication: PREMEDICATION
     Route: 042
  5. CARBOPLATIN [Concomitant]
     Route: 042
     Dates: start: 20030116, end: 20030116
  6. ATIVAN [Concomitant]
     Route: 042
     Dates: start: 20030116, end: 20030116

REACTIONS (4)
  - ABDOMINAL DISCOMFORT [None]
  - DIARRHOEA [None]
  - FLUSHING [None]
  - SYNCOPE [None]
